FAERS Safety Report 17179652 (Version 2)
Quarter: 2020Q2

REPORT INFORMATION
  Report Type: Spontaneous
  Country: DE (occurrence: DE)
  Receive Date: 20191220
  Receipt Date: 20200603
  Transmission Date: 20200713
  Serious: Yes (Hospitalization)
  Sender: FDA-Public Use
  Company Number: DE-SUN PHARMACEUTICAL INDUSTRIES LTD-2019RR-231398

PATIENT
  Age: 59 Year
  Sex: Male

DRUGS (18)
  1. RISPERIDON [Suspect]
     Active Substance: RISPERIDONE
     Dosage: 1 MILLIGRAM, UNK
     Route: 065
     Dates: start: 20190424, end: 20190426
  2. TRAZODONE [Suspect]
     Active Substance: TRAZODONE HYDROCHLORIDE
     Indication: MAJOR DEPRESSION
     Dosage: 100 MILLIGRAM, DAILY
     Route: 065
     Dates: start: 20190402, end: 20190414
  3. PROMETHAZINE [Suspect]
     Active Substance: PROMETHAZINE HYDROCHLORIDE
     Indication: DEPRESSIVE SYMPTOM
     Dosage: 25 MILLIGRAM, DAILY
     Route: 065
     Dates: start: 20190403, end: 20190414
  4. PROMETHAZINE [Suspect]
     Active Substance: PROMETHAZINE HYDROCHLORIDE
     Indication: RESTLESSNESS
     Dosage: 50 MILLIGRAM, DAILY
     Route: 065
     Dates: start: 20190415, end: 20190422
  5. PROMETHAZINE [Suspect]
     Active Substance: PROMETHAZINE HYDROCHLORIDE
     Dosage: 150 MILLIGRAM, UNK
     Route: 065
     Dates: start: 20190423, end: 20190426
  6. ZOPICLONE [Suspect]
     Active Substance: ZOPICLONE
     Dosage: 7.5 MILLIGRAM, UNK
     Route: 065
     Dates: start: 20190318, end: 20190331
  7. SERTRALINE [Suspect]
     Active Substance: SERTRALINE HYDROCHLORIDE
     Indication: SLEEP DISORDER
     Dosage: 150 MILLIGRAM, DAILY
     Route: 065
     Dates: start: 20190416, end: 20190426
  8. SERTRALINE [Suspect]
     Active Substance: SERTRALINE HYDROCHLORIDE
     Indication: MAJOR DEPRESSION
     Dosage: 100 MILLIGRAM, DAILY
     Route: 065
     Dates: start: 20190403, end: 20190415
  9. TRAZODONE [Suspect]
     Active Substance: TRAZODONE HYDROCHLORIDE
     Dosage: 25-100 MG
     Route: 065
     Dates: start: 20190321, end: 20190401
  10. SERTRALINE [Suspect]
     Active Substance: SERTRALINE HYDROCHLORIDE
     Dosage: 125 MILLIGRAM, UNK
     Route: 065
  11. RISPERIDON [Suspect]
     Active Substance: RISPERIDONE
     Indication: SLEEP DISORDER
     Dosage: 1 MILLIGRAM, DAILY
     Route: 065
     Dates: start: 20190318, end: 20190416
  12. TRAZODONE [Suspect]
     Active Substance: TRAZODONE HYDROCHLORIDE
     Indication: DEPRESSIVE SYMPTOM
     Dosage: 125 MILLIGRAM, DAILY
     Route: 065
     Dates: start: 20190415, end: 20190423
  13. TRAZODONE [Suspect]
     Active Substance: TRAZODONE HYDROCHLORIDE
     Dosage: UNK
     Route: 065
     Dates: start: 20190424, end: 20190426
  14. ZOPICLONE [Suspect]
     Active Substance: ZOPICLONE
     Dosage: 3.75 MILLIGRAM, UNK
     Route: 065
     Dates: start: 20190401, end: 20190426
  15. RISPERIDON [Suspect]
     Active Substance: RISPERIDONE
     Indication: DEPRESSIVE SYMPTOM
     Dosage: 2 MILLIGRAM, DAILY
     Route: 065
     Dates: start: 20190417, end: 20190423
  16. ZOPICLONE [Suspect]
     Active Substance: ZOPICLONE
     Indication: RESTLESSNESS
     Dosage: UNK
     Route: 065
  17. PANTOPRAZOL [Concomitant]
     Active Substance: PANTOPRAZOLE SODIUM
     Indication: PRODUCT USED FOR UNKNOWN INDICATION
     Dosage: 20 MILLIGRAM, UNK
     Route: 065
  18. BISOPROLOL 2.5 MG [Concomitant]
     Active Substance: BISOPROLOL
     Indication: PRODUCT USED FOR UNKNOWN INDICATION
     Dosage: 2.5 MILLIGRAM, UNK
     Route: 065

REACTIONS (3)
  - General symptom [Recovered/Resolved]
  - Akathisia [Recovered/Resolved]
  - Psychomotor hyperactivity [Recovered/Resolved]

NARRATIVE: CASE EVENT DATE: 20190418
